FAERS Safety Report 25082939 (Version 1)
Quarter: 2025Q1

REPORT INFORMATION
  Report Type: Spontaneous
  Country: RO (occurrence: RO)
  Receive Date: 20250317
  Receipt Date: 20250317
  Transmission Date: 20250409
  Serious: Yes (Life-Threatening, Hospitalization, Other)
  Sender: MANKIND PHARMA
  Company Number: RO-MankindUS-000342

PATIENT
  Age: 82 Year
  Sex: Female
  Weight: 77 kg

DRUGS (5)
  1. FUROSEMIDE [Interacting]
     Active Substance: FUROSEMIDE
     Indication: Arrhythmia
  2. DIGOXIN [Interacting]
     Active Substance: DIGOXIN
     Indication: Arrhythmia
  3. METOPROLOL [Interacting]
     Active Substance: METOPROLOL
     Indication: Arrhythmia
  4. LISINOPRIL [Interacting]
     Active Substance: LISINOPRIL
     Indication: Arrhythmia
  5. SPIRONOLACTONE [Interacting]
     Active Substance: SPIRONOLACTONE
     Indication: Arrhythmia

REACTIONS (3)
  - Drug interaction [Unknown]
  - Atrioventricular block complete [Recovered/Resolved]
  - Atrial flutter [Recovered/Resolved]
